FAERS Safety Report 9321090 (Version 2)
Quarter: 2013Q3

REPORT INFORMATION
  Report Type: Spontaneous
  Country: FR (occurrence: None)
  Receive Date: 20130528
  Receipt Date: 20130723
  Transmission Date: 20140515
  Serious: Yes (Other)
  Sender: FDA-Public Use
  Company Number: 7212042

PATIENT
  Age: 62 Year
  Sex: Female

DRUGS (2)
  1. LEVOTHYROX [Suspect]
     Indication: THYROID CANCER
     Route: 048
     Dates: start: 1990
  2. FEMARA [Suspect]
     Indication: BREAST CANCER
     Route: 048
     Dates: start: 201209

REACTIONS (2)
  - Hyperthyroidism [None]
  - Drug interaction [None]
